FAERS Safety Report 23939277 (Version 4)
Quarter: 2025Q1

REPORT INFORMATION
  Report Type: Spontaneous
  Country: CA (occurrence: CA)
  Receive Date: 20240605
  Receipt Date: 20250214
  Transmission Date: 20250408
  Serious: Yes (Other)
  Sender: CELLTRION
  Company Number: CA-PFIZER INC-202400181385

PATIENT

DRUGS (22)
  1. INFLECTRA [Suspect]
     Active Substance: INFLIXIMAB-DYYB
     Indication: Neurosarcoidosis
     Route: 042
     Dates: start: 20240124
  2. INFLECTRA [Suspect]
     Active Substance: INFLIXIMAB-DYYB
     Route: 042
     Dates: start: 20240417
  3. INFLECTRA [Suspect]
     Active Substance: INFLIXIMAB-DYYB
     Route: 042
     Dates: start: 20240603
  4. INFLECTRA [Suspect]
     Active Substance: INFLIXIMAB-DYYB
     Route: 042
     Dates: start: 20241224
  5. INFLECTRA [Suspect]
     Active Substance: INFLIXIMAB-DYYB
     Route: 042
     Dates: start: 20250204
  6. ACETAMINOPHEN [Concomitant]
     Active Substance: ACETAMINOPHEN
     Indication: Premedication
     Dates: start: 20240603, end: 20240603
  7. AMITRIPTYLINE [Concomitant]
     Active Substance: AMITRIPTYLINE
  8. ATORVASTATIN [Concomitant]
     Active Substance: ATORVASTATIN
  9. CALCIUM [Concomitant]
     Active Substance: CALCIUM
  10. CERTOPARIN SODIUM [Concomitant]
     Active Substance: CERTOPARIN SODIUM
  11. DIMENHYDRINATE [Concomitant]
     Active Substance: DIMENHYDRINATE
     Indication: Premedication
     Dates: start: 20240603, end: 20240603
  12. DIPHENHYDRAMINE [Concomitant]
     Active Substance: DIPHENHYDRAMINE
     Indication: Premedication
     Dates: start: 20240603, end: 20240603
  13. INSULIN NOS [Concomitant]
     Active Substance: INSULIN NOS
  14. METFORMIN [Concomitant]
     Active Substance: METFORMIN HYDROCHLORIDE
  15. METOPROLOL [Concomitant]
     Active Substance: METOPROLOL
  16. MYCOPHENOLIC ACID [Concomitant]
     Active Substance: MYCOPHENOLIC ACID
  17. OSELTAMIVIR PHOSPHATE [Concomitant]
     Active Substance: OSELTAMIVIR PHOSPHATE
  18. PREGABALIN [Concomitant]
     Active Substance: PREGABALIN
  19. SITAGLIPTIN [Concomitant]
     Active Substance: SITAGLIPTIN
  20. SULFADIAZINE\TRIMETHOPRIM [Concomitant]
     Active Substance: SULFADIAZINE\TRIMETHOPRIM
  21. TOPIRAMATE [Concomitant]
     Active Substance: TOPIRAMATE
  22. CHOLECALCIFEROL [Concomitant]
     Active Substance: CHOLECALCIFEROL

REACTIONS (6)
  - Fall [Recovering/Resolving]
  - Wrist fracture [Recovering/Resolving]
  - Upper limb fracture [Recovering/Resolving]
  - Hypertension [Recovering/Resolving]
  - Heart rate increased [Recovered/Resolved]
  - Malaise [Recovered/Resolved]

NARRATIVE: CASE EVENT DATE: 20240528
